FAERS Safety Report 7365790-7 (Version None)
Quarter: 2011Q1

REPORT INFORMATION
  Report Type: 
  Country: None (occurrence: None)
  Receive Date: 20110322
  Receipt Date: 20110309
  Transmission Date: 20110831
  Serious: Yes (Death, Other)
  Sender: FDA-Public Use
  Company Number: US-CELGENEUS-163-21880-11011042

PATIENT
  Sex: Male

DRUGS (27)
  1. DONEPEZIL HCL [Concomitant]
     Indication: DEMENTIA
     Dosage: 5 MILLIGRAM
     Route: 048
     Dates: start: 20101226
  2. SUPER B-COMPLEX [Concomitant]
     Indication: VITAMIN SUPPLEMENTATION
     Dosage: 2 TABLET
     Route: 065
     Dates: start: 20101224
  3. ASCORBIC ACID [Concomitant]
     Indication: VITAMIN SUPPLEMENTATION
     Dosage: 500 MILLIGRAM
     Route: 048
     Dates: start: 20101224
  4. SANDOSTATIN [Concomitant]
     Dosage: 30 MILLIGRAM
     Route: 030
     Dates: start: 20100910
  5. NYSTATIN [Concomitant]
     Dosage: 5 MILLILITER
     Dates: start: 20100929, end: 20101203
  6. PRAMIPEXOLE DIHYDROCHLORIDE [Concomitant]
     Indication: PARKINSON'S DISEASE
     Dosage: .25 MILLIGRAM
     Route: 048
     Dates: start: 20101226
  7. LYRICA [Concomitant]
     Dosage: 10 MILLIGRAM
     Route: 048
     Dates: start: 20060101
  8. SODIUM BICARBONATE [Concomitant]
     Indication: MINERAL SUPPLEMENTATION
     Dosage: 650 MILLIGRAM
     Route: 048
     Dates: start: 20101226
  9. LEXAPRO [Concomitant]
     Indication: ANXIETY
     Dosage: 20 MILLIGRAM
     Route: 048
     Dates: start: 20101226
  10. SLO-MAG [Concomitant]
     Indication: MINERAL SUPPLEMENTATION
     Dosage: 1
     Route: 048
     Dates: start: 20060101, end: 20101014
  11. SLO-MAG [Concomitant]
     Dosage: 4
     Route: 048
     Dates: start: 20101014, end: 20101224
  12. REVLIMID [Suspect]
     Dosage: 25 MILLIGRAM
     Route: 048
     Dates: start: 20100819, end: 20101117
  13. VALACYCLOVIR [Concomitant]
     Indication: ANTIVIRAL PROPHYLAXIS
     Dosage: 500 MILLIGRAM
     Route: 048
     Dates: start: 20100818
  14. PRILOSEC [Concomitant]
     Dosage: 15 MILLIGRAM
     Route: 048
     Dates: start: 20100818
  15. FERROUS SULFATE TAB [Concomitant]
     Indication: SUPPLEMENTATION THERAPY
     Dosage: 1 TABLET
     Route: 048
     Dates: start: 20040101
  16. GLIPIZIDE [Concomitant]
     Dosage: 5 MILLIGRAM
     Route: 048
     Dates: start: 20070101, end: 20101224
  17. MULTI-VITAMINS [Concomitant]
     Indication: VITAMIN SUPPLEMENTATION
     Dosage: 1 TABLET
     Route: 048
     Dates: start: 20050101, end: 20101203
  18. CALCIUM + VITAMIN D [Concomitant]
     Indication: VITAMIN SUPPLEMENTATION
     Dosage: 600 MILLIGRAM
     Route: 065
     Dates: start: 20100929, end: 20101203
  19. ASPIRIN [Concomitant]
     Indication: THROMBOSIS PROPHYLAXIS
     Dosage: 81 MILLIGRAM
     Route: 048
     Dates: start: 20100818, end: 20101220
  20. PHOSPH-NEUTRAL [Concomitant]
     Indication: MINERAL SUPPLEMENTATION
     Dosage: 1
     Route: 048
     Dates: start: 20100813, end: 20100924
  21. VITAMIN D [Concomitant]
     Indication: VITAMIN SUPPLEMENTATION
     Dosage: 400 IU (INTERNATIONAL UNIT)
     Route: 065
     Dates: start: 20101224
  22. NORMAL SALINE [Concomitant]
     Indication: HYPOTENSION
     Route: 065
     Dates: start: 20101101, end: 20101105
  23. CIPROFLOXACIN [Concomitant]
     Indication: ANTI-INFECTIVE THERAPY
     Dosage: 500 MILLIGRAM
     Route: 048
     Dates: start: 20100818, end: 20101220
  24. AMBIEN [Concomitant]
     Indication: SLEEP DISORDER
     Dosage: 5 MILLIGRAM
     Route: 048
     Dates: start: 20060101, end: 20101203
  25. OMEPRAZOLE [Concomitant]
     Dosage: 40 MILLIGRAM
     Route: 048
     Dates: start: 20100801
  26. IMODIUM [Concomitant]
     Dosage: 4 MILLIGRAM
     Route: 048
     Dates: start: 20100819
  27. METOPROLOL [Concomitant]
     Indication: BLOOD PRESSURE
     Dosage: 25 MILLIGRAM
     Route: 048
     Dates: start: 20050701, end: 20101203

REACTIONS (1)
  - MULTIPLE MYELOMA [None]
